FAERS Safety Report 6270587-5 (Version None)
Quarter: 2009Q3

REPORT INFORMATION
  Report Type: 
  Country: None (occurrence: None)
  Receive Date: 20090716
  Receipt Date: 20090709
  Transmission Date: 20100115
  Serious: Yes (Other)
  Sender: FDA-Public Use
  Company Number: US-JNJFOC-20090704053

PATIENT
  Age: 75 Year
  Sex: Female

DRUGS (1)
  1. KETOCONAZOLE [Suspect]
     Indication: ONYCHOMYCOSIS
     Dosage: THERAPY DURATION  28 DAYS AND 47 DAYS
     Route: 065

REACTIONS (1)
  - HEPATIC NECROSIS [None]
